FAERS Safety Report 9832677 (Version 1)
Quarter: 2014Q1

REPORT INFORMATION
  Report Type: Spontaneous
  Country: FR (occurrence: FR)
  Receive Date: 20140121
  Receipt Date: 20140121
  Transmission Date: 20141002
  Serious: Yes (Hospitalization)
  Sender: FDA-Public Use
  Company Number: FR-PFIZER INC-2014011947

PATIENT
  Sex: Male

DRUGS (2)
  1. SUTENT [Suspect]
     Dosage: 50 MG, UNK
     Dates: start: 201310
  2. TEMERIT [Concomitant]
     Indication: HYPERTENSION

REACTIONS (1)
  - Guillain-Barre syndrome [Unknown]
